FAERS Safety Report 11293455 (Version 1)
Quarter: 2015Q3

REPORT INFORMATION
  Report Type: Report from Study
  Country: KR (occurrence: KR)
  Receive Date: 20150722
  Receipt Date: 20150722
  Transmission Date: 20151125
  Serious: Yes (Hospitalization)
  Sender: FDA-Public Use
  Company Number: KR-OTSUKA-2015_005862

PATIENT
  Age: 75 Year
  Sex: Male

DRUGS (8)
  1. ATACAND [Concomitant]
     Active Substance: CANDESARTAN CILEXETIL
     Indication: HYPERTENSION
     Dosage: UNK
     Route: 065
     Dates: start: 20140207
  2. BLINDED *ASPIRIN [Suspect]
     Active Substance: ASPIRIN
     Indication: CEREBRAL INFARCTION
     Dosage: UNK
     Route: 048
     Dates: start: 20131012
  3. NEXIUM [Concomitant]
     Active Substance: ESOMEPRAZOLE MAGNESIUM
     Indication: ABDOMINAL PAIN UPPER
     Dosage: UNK
     Route: 065
     Dates: start: 20140502
  4. LIPITOR [Concomitant]
     Active Substance: ATORVASTATIN CALCIUM
     Indication: CEREBRAL INFARCTION
     Dosage: UNK
     Route: 065
     Dates: start: 20130814
  5. BLINDED *PLACEBO [Suspect]
     Active Substance: UNSPECIFIED INGREDIENT
     Indication: CEREBRAL INFARCTION
     Dosage: UNK
     Route: 048
     Dates: start: 20131012
  6. BLINDED CILOSTAZOL [Suspect]
     Active Substance: CILOSTAZOL
     Indication: CEREBRAL INFARCTION
     Dosage: UNK
     Route: 048
     Dates: start: 20131012
  7. BLINDED PROBUCOL [Suspect]
     Active Substance: PROBUCOL
     Indication: CEREBRAL INFARCTION
     Dosage: UNK
     Route: 048
     Dates: start: 20131012
  8. VAXAR [Concomitant]
     Indication: HYPERTENSION
     Dosage: UNK
     Route: 065
     Dates: start: 20130911

REACTIONS (2)
  - Cholangitis [Recovered/Resolved]
  - Bile duct stone [Recovered/Resolved]

NARRATIVE: CASE EVENT DATE: 20141009
